FAERS Safety Report 13056688 (Version 1)
Quarter: 2016Q4

REPORT INFORMATION
  Report Type: Spontaneous
  Country: IN (occurrence: IN)
  Receive Date: 20161222
  Receipt Date: 20161222
  Transmission Date: 20170207
  Serious: Yes (Other)
  Sender: FDA-Public Use
  Company Number: IN-ABBVIE-16P-078-1817634-00

PATIENT
  Age: 48 Year
  Sex: Male

DRUGS (3)
  1. RISPERIDONE. [Interacting]
     Active Substance: RISPERIDONE
     Indication: AGITATION
     Dosage: UP TO 5MG
     Route: 065
  2. LORAZEPAM. [Interacting]
     Active Substance: LORAZEPAM
     Indication: DETOXIFICATION
     Route: 065
  3. VALPROATE [Suspect]
     Active Substance: VALPROIC ACID
     Indication: MANIA
     Dosage: 500MG INCREASED TO 1500 MG OVER 6 DAYS
     Route: 065

REACTIONS (3)
  - Drug interaction [Recovered/Resolved]
  - Ischaemic stroke [Unknown]
  - Hyperammonaemic encephalopathy [Recovered/Resolved]
